FAERS Safety Report 4595414-3 (Version None)
Quarter: 2005Q1

REPORT INFORMATION
  Report Type: 
  Country: None (occurrence: None)
  Receive Date: 20050224
  Receipt Date: 20050208
  Transmission Date: 20050727
  Serious: Yes (Hospitalization)
  Sender: FDA-Public Use
  Company Number: USA050290311

PATIENT
  Age: 56 Year
  Sex: Male

DRUGS (7)
  1. HUMULIN N [Suspect]
     Indication: HYPERGLYCAEMIA
     Dosage: 5 U/2 DAY
     Dates: start: 20050101
  2. PROGRAF [Concomitant]
  3. CHLORTHALIDONE [Concomitant]
  4. TIAZAC [Concomitant]
  5. FUROSEMIDE [Concomitant]
  6. METOPROLOL [Concomitant]
  7. EPOGEN [Concomitant]

REACTIONS (2)
  - GASTROINTESTINAL HAEMORRHAGE [None]
  - PHARMACEUTICAL PRODUCT COMPLAINT [None]
